FAERS Safety Report 9499685 (Version 1)
Quarter: 2013Q3

REPORT INFORMATION
  Report Type: Spontaneous
  Country: US (occurrence: US)
  Receive Date: 20130905
  Receipt Date: 20130905
  Transmission Date: 20140515
  Serious: Yes (Other)
  Sender: FDA-Public Use
  Company Number: US-CELGENEUS-163-21880-13083816

PATIENT
  Sex: Female
  Weight: 81.72 kg

DRUGS (2)
  1. REVLIMID [Suspect]
     Indication: PLASMA CELL MYELOMA
     Route: 048
     Dates: start: 201212
  2. REVLIMID [Suspect]
     Route: 048
     Dates: start: 201301

REACTIONS (2)
  - Menorrhagia [Not Recovered/Not Resolved]
  - Anaemia [Not Recovered/Not Resolved]
